FAERS Safety Report 9501605 (Version 5)
Quarter: 2014Q1

REPORT INFORMATION
  Report Type: Spontaneous
  Country: CA (occurrence: CA)
  Receive Date: 20130905
  Receipt Date: 20140226
  Transmission Date: 20141002
  Serious: Yes (Other)
  Sender: FDA-Public Use
  Company Number: CA-ROCHE-1269376

PATIENT
  Age: 38 Year
  Sex: Female

DRUGS (12)
  1. XOLAIR [Suspect]
     Indication: ASTHMA
     Route: 058
  2. XOLAIR [Suspect]
     Dosage: DOSE RECEIVED ON 18/JUL/2013
     Route: 058
  3. XOLAIR [Suspect]
     Dosage: DOSE RECEIVED ON 26/AUG/2013
     Route: 058
  4. REACTINE (CANADA) [Concomitant]
     Dosage: 10 MG EVERY NIGHT AT BEDTIME
     Route: 065
  5. REACTINE (CANADA) [Concomitant]
     Route: 065
  6. PREDNISONE [Concomitant]
  7. CLARITIN [Concomitant]
  8. SYMBICORT [Concomitant]
  9. BENADRYL (CANADA) [Concomitant]
  10. NASACORT [Concomitant]
  11. ZANTAC [Concomitant]
     Route: 048
  12. SINGULAIR [Concomitant]

REACTIONS (22)
  - Upper respiratory tract infection [Unknown]
  - Lymph node pain [Recovered/Resolved]
  - Disturbance in attention [Recovered/Resolved]
  - Sinus headache [Unknown]
  - Restless legs syndrome [Unknown]
  - Local swelling [Recovered/Resolved]
  - Chest discomfort [Unknown]
  - Dysphonia [Unknown]
  - Oral pain [Recovered/Resolved]
  - Local swelling [Unknown]
  - Fatigue [Not Recovered/Not Resolved]
  - Dry throat [Recovered/Resolved]
  - Abdominal distension [Unknown]
  - Rhinorrhoea [Unknown]
  - Rash macular [Unknown]
  - Pruritus [Unknown]
  - Abdominal tenderness [Unknown]
  - Musculoskeletal chest pain [Unknown]
  - Gastroenteritis viral [Unknown]
  - Myalgia [Unknown]
  - Urticaria [Unknown]
  - Injection site swelling [Unknown]
